FAERS Safety Report 10398434 (Version 2)
Quarter: 2014Q3

REPORT INFORMATION
  Report Type: Spontaneous
  Country: US (occurrence: US)
  Receive Date: 20140821
  Receipt Date: 20140903
  Transmission Date: 20150326
  Serious: Yes (Other)
  Sender: FDA-Public Use
  Company Number: CHPA2014US010857

PATIENT
  Age: 83 Year
  Sex: Female

DRUGS (2)
  1. ASCRIPTIN REGULAR STRENGTH BUFFERED ASPIRIN [Suspect]
     Active Substance: ASPIRIN
     Indication: HEADACHE
     Dosage: 2 DF, UNK
     Route: 048
  2. ASCRIPTIN REGULAR STRENGTH BUFFERED ASPIRIN [Suspect]
     Active Substance: ASPIRIN
     Indication: MYALGIA

REACTIONS (3)
  - Hip arthroplasty [Recovered/Resolved]
  - Femur fracture [Recovered/Resolved]
  - Hepatitis C [Not Recovered/Not Resolved]
